FAERS Safety Report 8052066-8 (Version None)
Quarter: 2012Q1

REPORT INFORMATION
  Report Type: 
  Country: None (occurrence: None)
  Receive Date: 20120118
  Receipt Date: 20120109
  Transmission Date: 20120608
  Serious: Yes (Other)
  Sender: FDA-Public Use
  Company Number: US-GENZYME-FABR-1002152

PATIENT

DRUGS (7)
  1. PROVENTIL [Concomitant]
     Indication: ASTHMA
     Dosage: 2 U, Q4HR
     Route: 055
  2. FABRAZYME [Suspect]
     Indication: FABRY'S DISEASE
     Dosage: 35 MG, Q3W
     Route: 042
     Dates: start: 20030909
  3. CYMBALTA [Concomitant]
     Indication: PAIN
     Dosage: 60 MG, QD
     Route: 065
  4. NEURONTIN [Concomitant]
     Indication: PAIN
     Dosage: 800 MG, QID
     Route: 065
  5. AMITIZA [Concomitant]
     Indication: CONSTIPATION
     Dosage: 24 MG, BID
     Route: 065
  6. CARBAMAZEPINE [Concomitant]
     Indication: PAIN
     Dosage: 800 MG, BID
     Route: 065
  7. OXYCONTIN [Concomitant]
     Indication: PAIN
     Dosage: 80 MG, BID
     Route: 065

REACTIONS (1)
  - GASTROINTESTINAL DISORDER [None]
